FAERS Safety Report 4827738-6 (Version None)
Quarter: 2005Q4

REPORT INFORMATION
  Report Type: 
  Country: None (occurrence: None)
  Receive Date: 20051110
  Receipt Date: 20051101
  Transmission Date: 20060501
  Serious: Yes (Other)
  Sender: FDA-Public Use
  Company Number: US_0511123515

PATIENT
  Age: 16 Year

DRUGS (9)
  1. GEMZAR [Suspect]
     Indication: BONE SARCOMA
     Dosage: 250 MG/M2 OTHER
     Route: 042
  2. QUADRAMET [Concomitant]
  3. CALCIUM CARBONATE [Concomitant]
  4. FUROSEMIDE [Concomitant]
  5. DEXTROSE 5% WITH 0.45% CHLORIDE [Concomitant]
  6. POTASSIUM CHLORIDE [Concomitant]
  7. GRANISETRON [Concomitant]
  8. DEXAMETHASONE [Concomitant]
  9. LEVOFLOXACIN [Concomitant]

REACTIONS (3)
  - DRUG TOXICITY [None]
  - MUCOSAL INFLAMMATION [None]
  - PANCYTOPENIA [None]
